FAERS Safety Report 7919312-X (Version None)
Quarter: 2011Q4

REPORT INFORMATION
  Report Type: 
  Country: None (occurrence: None)
  Receive Date: 20111117
  Receipt Date: 20111107
  Transmission Date: 20120403
  Serious: Yes (Other)
  Sender: FDA-Public Use
  Company Number: US-JNJFOC-20110903732

PATIENT
  Sex: Female
  Weight: 73.94 kg

DRUGS (5)
  1. REMICADE [Suspect]
     Route: 042
     Dates: start: 20110501
  2. PREVACID [Concomitant]
     Indication: HYPERCHLORHYDRIA
  3. LIALDA [Concomitant]
     Indication: COLITIS
     Route: 048
  4. REMICADE [Suspect]
     Indication: COLITIS ULCERATIVE
     Route: 042
     Dates: start: 20110713
  5. PAXIL [Concomitant]
     Indication: ANXIETY
     Route: 048

REACTIONS (13)
  - HYPERTENSION [None]
  - COUGH [None]
  - CHEST DISCOMFORT [None]
  - DIZZINESS [None]
  - PHOTOSENSITIVITY REACTION [None]
  - MOTOR DYSFUNCTION [None]
  - FEELING ABNORMAL [None]
  - VISUAL IMPAIRMENT [None]
  - PARAESTHESIA [None]
  - ALOPECIA [None]
  - ANXIETY [None]
  - BALANCE DISORDER [None]
  - SINUS HEADACHE [None]
